FAERS Safety Report 6577206-9 (Version None)
Quarter: 2010Q1

REPORT INFORMATION
  Report Type: 
  Country: None (occurrence: None)
  Receive Date: 20100210
  Receipt Date: 20100210
  Transmission Date: 20100710
  Serious: Yes (Hospitalization)
  Sender: FDA-Public Use
  Company Number: PHHO2003US01958

PATIENT
  Sex: Female
  Weight: 82.2 kg

DRUGS (7)
  1. STARLIX [Suspect]
     Indication: GLUCOSE TOLERANCE IMPAIRED
     Dosage: 60 MG, UNK
     Route: 048
     Dates: start: 20021213, end: 20030107
  2. STARLIX [Suspect]
     Dosage: NO TREATMENT
     Dates: start: 20030108, end: 20030202
  3. STARLIX [Suspect]
     Dosage: DOUBLE BLIND
     Route: 048
     Dates: start: 20030203
  4. DIOVAN T30230+CAPS [Suspect]
     Indication: HYPERTENSION
     Dosage: LEVEL1
     Dates: start: 20021213, end: 20030104
  5. DIOVAN T30230+CAPS [Suspect]
     Dosage: NO TREATMENT
     Dates: start: 20030105, end: 20030202
  6. DIOVAN T30230+CAPS [Suspect]
     Dosage: UNK
     Dates: start: 20030203
  7. CLONIDINE [Suspect]
     Dosage: .1 MG, BID
     Route: 048
     Dates: start: 20021001

REACTIONS (4)
  - CHEST PAIN [None]
  - DYSPNOEA [None]
  - HYPERTENSION [None]
  - TACHYCARDIA [None]
